FAERS Safety Report 12405435 (Version 1)
Quarter: 2016Q2

REPORT INFORMATION
  Report Type: Spontaneous
  Country: US (occurrence: None)
  Receive Date: 20160525
  Receipt Date: 20160525
  Transmission Date: 20160815
  Serious: Yes (Disabling, Other)
  Sender: FDA-Public Use
  Company Number: None

PATIENT
  Age: 41 Year
  Sex: Female
  Weight: 61.24 kg

DRUGS (3)
  1. LEVOFLOXACIN, 500 MG ZYDUS [Suspect]
     Active Substance: LEVOFLOXACIN
     Indication: NASOPHARYNGITIS
     Dosage: 3 TABLET(S) ONCE A DAY TAKEN BY MOUTH
     Route: 048
     Dates: start: 20160510, end: 20160513
  2. ORTHO CYCLEN [Concomitant]
     Active Substance: ETHINYL ESTRADIOL\NORGESTIMATE
  3. LEVOFLOXACIN, 500 MG ZYDUS [Suspect]
     Active Substance: LEVOFLOXACIN
     Indication: SINUSITIS
     Dosage: 3 TABLET(S) ONCE A DAY TAKEN BY MOUTH
     Route: 048
     Dates: start: 20160510, end: 20160513

REACTIONS (30)
  - Balance disorder [None]
  - Cardiac flutter [None]
  - Quality of life decreased [None]
  - Constipation [None]
  - Decreased appetite [None]
  - Palpitations [None]
  - Chest pain [None]
  - Crying [None]
  - Pain [None]
  - Anxiety [None]
  - Dry mouth [None]
  - Feeling jittery [None]
  - Insomnia [None]
  - Arthralgia [None]
  - Dizziness [None]
  - Asthenia [None]
  - Headache [None]
  - Diarrhoea [None]
  - Tongue coated [None]
  - Tendonitis [None]
  - Blepharospasm [None]
  - Coordination abnormal [None]
  - Peripheral coldness [None]
  - Cough [None]
  - Vitreous floaters [None]
  - Feeling abnormal [None]
  - Discomfort [None]
  - Muscle spasms [None]
  - Joint stiffness [None]
  - Weight decreased [None]

NARRATIVE: CASE EVENT DATE: 20160511
